FAERS Safety Report 26043403 (Version 1)
Quarter: 2025Q4

REPORT INFORMATION
  Report Type: Spontaneous
  Country: US (occurrence: US)
  Receive Date: 20251113
  Receipt Date: 20251113
  Transmission Date: 20260118
  Serious: No
  Sender: EMD SERONO INC
  Company Number: US-Merck Healthcare KGaA-2025055933

PATIENT
  Sex: Male

DRUGS (1)
  1. REBIF [Suspect]
     Active Substance: INTERFERON BETA-1A
     Indication: Multiple sclerosis
     Dosage: SERIAL NUMBER 1ST BOX: 45432948786?2ND BOX: 64274699948?3RD BOX: 35401513788

REACTIONS (3)
  - Injection site cellulitis [Recovering/Resolving]
  - Suspected product quality issue [Unknown]
  - Suspected product contamination [Unknown]
